FAERS Safety Report 15520304 (Version 1)
Quarter: 2018Q4

REPORT INFORMATION
  Report Type: Spontaneous
  Country: US (occurrence: US)
  Receive Date: 20181017
  Receipt Date: 20181017
  Transmission Date: 20190205
  Serious: No
  Sender: FDA-Public Use
  Company Number: US-NOVOPROD-611948

PATIENT
  Age: 70 Year
  Sex: Female

DRUGS (2)
  1. TRESIBA FLEXTOUCH U200 [Suspect]
     Active Substance: INSULIN DEGLUDEC
     Dosage: 40 U, QD
     Route: 058
     Dates: start: 2015
  2. TRESIBA FLEXTOUCH U200 [Suspect]
     Active Substance: INSULIN DEGLUDEC
     Indication: TYPE 2 DIABETES MELLITUS
     Dosage: 80 U, QD
     Route: 058
     Dates: start: 2015

REACTIONS (7)
  - Incontinence [Unknown]
  - Blood cholesterol increased [Unknown]
  - Injection site bruising [Unknown]
  - Fibromyalgia [Unknown]
  - Blood glucose increased [Not Recovered/Not Resolved]
  - Blood glucose decreased [Unknown]
  - Osteoporosis [Unknown]

NARRATIVE: CASE EVENT DATE: 20180707
